FAERS Safety Report 4415245-4 (Version None)
Quarter: 2004Q3

REPORT INFORMATION
  Report Type: 
  Country: None (occurrence: None)
  Receive Date: 20040729
  Receipt Date: 20040721
  Transmission Date: 20050211
  Serious: Yes (Death)
  Sender: FDA-Public Use
  Company Number: 2003189975JP

PATIENT
  Age: 66 Year
  Sex: Male

DRUGS (4)
  1. DOXORUBICIN HYDROCHLORIDE [Suspect]
     Indication: LYMPHOMA
     Dosage: 688 MG (CUMULATIVE DOSE), IV
     Route: 042
     Dates: start: 19980101
  2. CYCLOPHOSPHAMIDE [Suspect]
     Indication: LYMPHOMA
     Dosage: 10330 MG (CUMULATIVE DOSE), IV
     Route: 042
     Dates: start: 19980101
  3. ONCOVIN [Suspect]
     Indication: LYMPHOMA
     Dosage: 16 MG (CUMULATIVE DOSE), IV
     Route: 042
     Dates: start: 19980101
  4. PREDNISOLONE [Suspect]
     Indication: LYMPHOMA
     Dosage: IV
     Route: 042
     Dates: start: 19980101

REACTIONS (5)
  - LARGE CELL CARCINOMA OF THE RESPIRATORY TRACT STAGE UNSPECIFIED [None]
  - LARGE CELL LUNG CANCER STAGE IV [None]
  - LUNG SQUAMOUS CELL CARCINOMA STAGE UNSPECIFIED [None]
  - METASTASES TO LIVER [None]
  - METASTASIS [None]
